FAERS Safety Report 8046141-1 (Version None)
Quarter: 2012Q1

REPORT INFORMATION
  Report Type: 
  Country: None (occurrence: None)
  Receive Date: 20120113
  Receipt Date: 20120110
  Transmission Date: 20120608
  Serious: No
  Sender: FDA-Public Use
  Company Number: US-PFIZER INC-2012007640

PATIENT
  Sex: Female

DRUGS (1)
  1. IBUPROFEN (ADVIL) [Suspect]
     Indication: ARTHRALGIA
     Dosage: UNKNOWN DOSE 2 ORAL TABLETS, 2X/DAY
     Route: 048
     Dates: start: 20120101, end: 20120110

REACTIONS (1)
  - DIARRHOEA [None]
